FAERS Safety Report 11648255 (Version 1)
Quarter: 2015Q4

REPORT INFORMATION
  Report Type: Spontaneous
  Country: US (occurrence: None)
  Receive Date: 20151020
  Receipt Date: 20151020
  Transmission Date: 20160304
  Serious: Yes (Hospitalization)
  Sender: FDA-Public Use
  Company Number: None

PATIENT
  Age: 45 Year
  Sex: Female
  Weight: 73.7 kg

DRUGS (4)
  1. DECITABINE. [Concomitant]
     Active Substance: DECITABINE
  2. RIVAROXABAN [Concomitant]
     Active Substance: RIVAROXABAN
  3. STELARA [Suspect]
     Active Substance: USTEKINUMAB
     Indication: PSORIASIS
  4. POSACONAZOLE [Concomitant]
     Active Substance: POSACONAZOLE

REACTIONS (4)
  - Immune thrombocytopenic purpura [None]
  - Disease progression [None]
  - No therapeutic response [None]
  - Myelodysplastic syndrome [None]

NARRATIVE: CASE EVENT DATE: 20151007
